FAERS Safety Report 5248916-0 (Version None)
Quarter: 2007Q1

REPORT INFORMATION
  Report Type: 
  Country: None (occurrence: None)
  Receive Date: 20070223
  Receipt Date: 20070209
  Transmission Date: 20070707
  Serious: Yes (Death, Hospitalization)
  Sender: FDA-Public Use
  Company Number: 143-20785-07020738

PATIENT
  Age: 77 Year
  Sex: Male

DRUGS (3)
  1. THALIDOMIDE [Suspect]
     Indication: MYELODYSPLASTIC SYNDROME
     Dosage: 200 MG, 4 IN 1 D; PER ORAL
     Route: 048
     Dates: start: 20051005, end: 20060830
  2. RECORMON (ERYTHROPOIETIN HUMAN) (INJECTION) [Concomitant]
  3. NEUPOGEN [Concomitant]

REACTIONS (10)
  - CARDIAC FAILURE CONGESTIVE [None]
  - CHRONIC OBSTRUCTIVE PULMONARY DISEASE [None]
  - JOINT INJURY [None]
  - JOINT SWELLING [None]
  - MYOCARDIAL ISCHAEMIA [None]
  - POOR PERIPHERAL CIRCULATION [None]
  - PULMONARY EMBOLISM [None]
  - PULMONARY OEDEMA [None]
  - URINARY BLADDER HAEMORRHAGE [None]
  - URINARY RETENTION [None]
